FAERS Safety Report 5452948-7 (Version None)
Quarter: 2007Q3

REPORT INFORMATION
  Report Type: 
  Country: None (occurrence: None)
  Receive Date: 20070914
  Receipt Date: 20070911
  Transmission Date: 20080115
  Serious: Yes (Hospitalization)
  Sender: FDA-Public Use
  Company Number: FR-ASTRAZENECA-2007CG01285

PATIENT
  Age: 19679 Day
  Sex: Female

DRUGS (5)
  1. XYLOCAINE [Suspect]
     Indication: GENERAL ANAESTHESIA
     Route: 042
     Dates: start: 20060328, end: 20060328
  2. PROPOFOL FRESENIUS [Suspect]
     Indication: GENERAL ANAESTHESIA
     Route: 042
     Dates: start: 20060328, end: 20060328
  3. SUFENTANIL MERCK [Suspect]
     Indication: GENERAL ANAESTHESIA
     Route: 042
     Dates: start: 20060328, end: 20060328
  4. CELOCURINE [Suspect]
     Indication: GENERAL ANAESTHESIA
     Route: 042
     Dates: start: 20060328, end: 20060328
  5. ATARAX [Suspect]
     Indication: ANAESTHETIC PREMEDICATION
     Dates: start: 20060328, end: 20060328

REACTIONS (2)
  - BRONCHOSPASM [None]
  - GENERALISED ERYTHEMA [None]
